FAERS Safety Report 8052419-8 (Version None)
Quarter: 2012Q1

REPORT INFORMATION
  Report Type: 
  Country: None (occurrence: None)
  Receive Date: 20120118
  Receipt Date: 20120112
  Transmission Date: 20120608
  Serious: Yes (Death, Other)
  Sender: FDA-Public Use
  Company Number: US-PFIZER INC-2012010445

PATIENT
  Sex: Female

DRUGS (1)
  1. REVATIO [Suspect]
     Indication: PULMONARY HYPERTENSION
     Dosage: 20 MG, 3X/DAY (^20MG 3 TABS TID^)
     Dates: start: 20111027, end: 20120111

REACTIONS (4)
  - PULMONARY HYPERTENSION [None]
  - PLEURAL EFFUSION [None]
  - CARDIAC FAILURE [None]
  - PNEUMONIA [None]
